FAERS Safety Report 14599268 (Version 1)
Quarter: 2018Q1

REPORT INFORMATION
  Report Type: Spontaneous
  Country: NL (occurrence: NL)
  Receive Date: 20180305
  Receipt Date: 20180305
  Transmission Date: 20180509
  Serious: Yes (Hospitalization)
  Sender: FDA-Public Use
  Company Number: NL-PURDUE-GBR-2018-0053703

PATIENT
  Age: 40 Year
  Sex: Male
  Weight: 104 kg

DRUGS (6)
  1. DULOXETINE. [Concomitant]
     Active Substance: DULOXETINE
     Dosage: 2 DF, DAILY
  2. METHYLFENIDAAT HCL [Concomitant]
     Dosage: 10 MG, Q8H
  3. OXYCODONE HYDROCHLORIDE. [Interacting]
     Active Substance: OXYCODONE HYDROCHLORIDE
     Dosage: 5 MG, QID PRN [5MG STRENGTH]
     Route: 065
     Dates: start: 20171008, end: 20171107
  4. PROPRANOLOL [Concomitant]
     Active Substance: PROPRANOLOL HYDROCHLORIDE
     Dosage: 40 MG, Q8H
  5. OXYCODONE HYDROCHLORIDE. [Suspect]
     Active Substance: OXYCODONE HYDROCHLORIDE
     Indication: PROCEDURAL PAIN
     Dosage: 10 MG, BID [10MG STRENGTH]
     Route: 065
     Dates: start: 20171008, end: 20171107
  6. GABAPENTINE [Interacting]
     Active Substance: GABAPENTIN
     Indication: NEUROPATHY PERIPHERAL
     Dosage: 200 MG, Q8H
     Route: 065
     Dates: start: 20160101

REACTIONS (5)
  - Trismus [Recovering/Resolving]
  - Drug interaction [Unknown]
  - Muscle spasms [Recovering/Resolving]
  - Confusional state [Unknown]
  - Visual impairment [Unknown]

NARRATIVE: CASE EVENT DATE: 20171106
